FAERS Safety Report 4645288-7 (Version None)
Quarter: 2005Q2

REPORT INFORMATION
  Report Type: 
  Country: None (occurrence: None)
  Receive Date: 20050331
  Receipt Date: 20041203
  Transmission Date: 20051028
  Serious: No
  Sender: FDA-Public Use
  Company Number: 04P-163-0279688

PATIENT
  Age: 70 Year
  Sex: Female
  Weight: 57.1532 kg

DRUGS (12)
  1. HUMIRA [Suspect]
     Indication: RHEUMATOID ARTHRITIS
     Dosage: 40 MG, 1 IN 2 WK, SUBCUTANEOUS, 40 MILLICURIES, 1 IN I1 WK , SUBCUTANEOUS
     Route: 058
     Dates: start: 20040401, end: 20040501
  2. HUMIRA [Suspect]
     Indication: RHEUMATOID ARTHRITIS
     Dosage: 40 MG, 1 IN 2 WK, SUBCUTANEOUS, 40 MILLICURIES, 1 IN I1 WK , SUBCUTANEOUS
     Route: 058
     Dates: start: 20040501, end: 20041101
  3. CELECOXIB [Concomitant]
  4. FORTEO [Concomitant]
  5. FOSINOPRIL SODIUM [Concomitant]
  6. INSULIN [Concomitant]
  7. METHOTREXATE [Concomitant]
  8. IRON [Concomitant]
  9. FOLIC ACID [Concomitant]
  10. MULTIVITAMIN [Concomitant]
  11. ERGOCALCIFEROL [Concomitant]
  12. CALICIUM [Concomitant]

REACTIONS (2)
  - DRUG INEFFECTIVE [None]
  - FURUNCLE [None]
